FAERS Safety Report 5262603-4 (Version None)
Quarter: 2007Q1

REPORT INFORMATION
  Report Type: 
  Country: None (occurrence: None)
  Receive Date: 20070312
  Receipt Date: 20070306
  Transmission Date: 20070707
  Serious: Yes (Other)
  Sender: FDA-Public Use
  Company Number: AUWYE908106MAR07

PATIENT
  Age: 37 Year
  Sex: Female

DRUGS (5)
  1. PREMARIN [Suspect]
     Indication: PREMATURE MENOPAUSE
     Route: 048
     Dates: start: 20060525, end: 20070301
  2. AMITRIPTYLINE HCL [Concomitant]
  3. PREDNISOLONE [Concomitant]
     Dosage: 75 MG
  4. PAMIDRONATE DISODIUM [Concomitant]
     Dosage: EVERY 3 MONTHS
     Route: 042
  5. AZATHIOPRINE [Concomitant]

REACTIONS (1)
  - HEPATIC ENZYME INCREASED [None]
